FAERS Safety Report 7881992-5 (Version None)
Quarter: 2011Q4

REPORT INFORMATION
  Report Type: 
  Country: None (occurrence: None)
  Receive Date: 20111101
  Receipt Date: 20110606
  Transmission Date: 20120403
  Serious: No
  Sender: FDA-Public Use
  Company Number: US-AMGEN-USASP2011029194

PATIENT
  Age: 47 Year
  Sex: Female

DRUGS (1)
  1. ENBREL [Suspect]
     Indication: RHEUMATOID ARTHRITIS
     Dosage: 50 MG, QWK
     Dates: start: 20110519

REACTIONS (11)
  - MOBILITY DECREASED [None]
  - INJECTION SITE WARMTH [None]
  - MUSCLE TIGHTNESS [None]
  - INJECTION SITE MASS [None]
  - JOINT LOCK [None]
  - JOINT STIFFNESS [None]
  - INJECTION SITE REACTION [None]
  - JOINT CREPITATION [None]
  - INJECTION SITE PAIN [None]
  - PAIN IN EXTREMITY [None]
  - MUSCULOSKELETAL STIFFNESS [None]
